FAERS Safety Report 4828430-4 (Version None)
Quarter: 2005Q4

REPORT INFORMATION
  Report Type: 
  Country: None (occurrence: None)
  Receive Date: 20051115
  Receipt Date: 20050830
  Transmission Date: 20060501
  Serious: Yes (Death, Hospitalization, Other)
  Sender: FDA-Public Use
  Company Number: US-BRISTOL-MYERS SQUIBB COMPANY-13094016

PATIENT
  Age: 73 Year
  Sex: Female
  Weight: 68 kg

DRUGS (4)
  1. CETUXIMAB [Suspect]
     Indication: NON-SMALL CELL LUNG CANCER
     Dosage: INITIAL TX DATE: 24-MAY-05.  LAST ADMINISTERED ON 23-AUG-2005 WEEK 14
     Route: 042
     Dates: start: 20050823, end: 20050823
  2. CARBOPLATIN [Suspect]
     Indication: NON-SMALL CELL LUNG CANCER
     Dosage: INITIAL TX DATE: 31-MAY-05 (172 MG). LAST ADM ON 09-AUG-05 (WK 12) DIDN'T REC ON WKS 9, 10 AND 11.
     Route: 042
     Dates: start: 20050809, end: 20050809
  3. TAXOL [Suspect]
     Indication: NON-SMALL CELL LUNG CANCER
     Dosage: INITIAL TX DATE: 31-MAY-05 (78 MG). LAST ADM ON 09-AUG-05 (WK 12) DIDN'T REC ON WKS 9, 10 AND 11
     Route: 042
     Dates: start: 20050809, end: 20050809
  4. RADIATION THERAPY [Suspect]
     Indication: NON-SMALL CELL LUNG CANCER
     Dosage: TOTAL DOSE TO DATE: 63 GY/NUMBER OF FRACTIONS: 35/NUMBER OF ELAPSED DAYS: 49
     Dates: start: 20050719, end: 20050719

REACTIONS (18)
  - ACUTE RESPIRATORY DISTRESS SYNDROME [None]
  - ANOXIC ENCEPHALOPATHY [None]
  - BRONCHOSPASM [None]
  - CARDIO-RESPIRATORY ARREST [None]
  - FACIAL BONES FRACTURE [None]
  - FALL [None]
  - FRACTURE [None]
  - LACERATION [None]
  - NON-SMALL CELL LUNG CANCER [None]
  - PNEUMONIA [None]
  - PNEUMONIA ASPIRATION [None]
  - PNEUMOTHORAX [None]
  - RESPIRATORY MONILIASIS [None]
  - RIB FRACTURE [None]
  - SEPSIS [None]
  - SUBCUTANEOUS EMPHYSEMA [None]
  - TACHYCARDIA [None]
  - TRACHEOBRONCHITIS [None]
